FAERS Safety Report 7737127-2 (Version None)
Quarter: 2011Q3

REPORT INFORMATION
  Report Type: 
  Country: None (occurrence: None)
  Receive Date: 20110908
  Receipt Date: 20110831
  Transmission Date: 20111222
  Serious: Yes (Other)
  Sender: FDA-Public Use
  Company Number: BR-PFIZER INC-2011204469

PATIENT
  Age: 63 Year
  Sex: Male
  Weight: 77 kg

DRUGS (11)
  1. DEXAMETHASONE [Interacting]
     Dosage: 4 MG, 1X/DAY, IN THE MORNING
     Route: 048
     Dates: start: 20100708, end: 20100718
  2. AMITRIPTYLINE [Concomitant]
     Dosage: 50 MG, 1X/DAY, AT NIGHT
     Route: 048
     Dates: start: 20100510
  3. DIPYRONE TAB [Concomitant]
     Dosage: 30 DROPS, AS NEEDED, EVERY 4 HOURS
     Route: 048
     Dates: start: 20100108, end: 20100127
  4. DEXAMETHASONE [Interacting]
     Dosage: 4 MG, 2X/DAY, EVERY 12 HOURS
     Route: 048
     Dates: start: 20100628, end: 20100708
  5. TRAMADOL [Concomitant]
     Dosage: 50 MG, 3X/DAY, EVERY 8 HOURS
     Route: 048
     Dates: start: 20100108, end: 20100127
  6. TRAMADOL [Concomitant]
     Dosage: 50 MG, 4X/DAY, EVERY 6 HOURS
     Route: 048
     Dates: start: 20100127
  7. DEXAMETHASONE [Interacting]
     Dosage: 4 MG IN MEALS
     Route: 048
     Dates: start: 20100618, end: 20100628
  8. AMITRIPTYLINE [Concomitant]
     Dosage: 25 MG, 1X/DAY, AT NIGHT
     Dates: start: 20100318, end: 20100510
  9. DIPYRONE TAB [Concomitant]
     Dosage: 40 DROPS, AS NEEDED, EVERY 6 HOURS
     Route: 048
     Dates: start: 20100127, end: 20100510
  10. SUTENT [Suspect]
     Dosage: 50 MG, 1X/DAY
     Route: 048
     Dates: start: 20100513
  11. DIPYRONE TAB [Concomitant]
     Dosage: 40 DROPS, 4X/DAY, EVERY 6 HOURS
     Route: 048
     Dates: start: 20100510

REACTIONS (3)
  - SKIN DISCOLOURATION [None]
  - FATIGUE [None]
  - DRUG INTERACTION [None]
